FAERS Safety Report 5735115-9 (Version None)
Quarter: 2008Q2

REPORT INFORMATION
  Report Type: 
  Country: None (occurrence: None)
  Receive Date: 20080512
  Receipt Date: 20080502
  Transmission Date: 20081010
  Serious: Yes (Congenital Anomaly)
  Sender: FDA-Public Use
  Company Number: US-ASTRAZENECA-2008AC01163

PATIENT
  Sex: Male

DRUGS (5)
  1. QUETIAPINE FUMARATE [Suspect]
     Route: 064
  2. COCAINE [Suspect]
     Route: 064
  3. HEROIN [Suspect]
     Route: 064
  4. ALCOHOL [Suspect]
     Route: 064
  5. TOBACCO [Suspect]
     Route: 064

REACTIONS (6)
  - CONGENITAL OCULOMOTOR APRAXIA [None]
  - CONGESTIVE CARDIOMYOPATHY [None]
  - DILATATION VENTRICULAR [None]
  - EJECTION FRACTION DECREASED [None]
  - HYPOTONIA [None]
  - NUCLEAR MAGNETIC RESONANCE IMAGING BRAIN ABNORMAL [None]
